FAERS Safety Report 21055684 (Version 1)
Quarter: 2022Q3

REPORT INFORMATION
  Report Type: Spontaneous
  Country: FR (occurrence: None)
  Receive Date: 20220708
  Receipt Date: 20220708
  Transmission Date: 20221027
  Serious: Yes (Hospitalization)
  Sender: FDA-Public Use
  Company Number: FR-Orion Corporation ORION PHARMA-TREX2022-0119

PATIENT
  Age: 77 Year
  Sex: Male

DRUGS (8)
  1. METHOTREXATE SODIUM [Suspect]
     Active Substance: METHOTREXATE SODIUM
     Indication: Neurodermatitis
     Dosage: STRENGTH: 10 MG
     Route: 048
     Dates: start: 202109, end: 202203
  2. METHOTREXATE SODIUM [Suspect]
     Active Substance: METHOTREXATE SODIUM
     Dosage: STRENGTH: 10 MG; 1.5 TABLET IN THE MORNING
     Route: 048
     Dates: start: 202203, end: 20220525
  3. OXYCONTIN [Suspect]
     Active Substance: OXYCODONE HYDROCHLORIDE
     Indication: Hip fracture
     Dosage: 1 TABLET ON THE MORNING, 1 TABLET ON THE EVENING
     Route: 048
     Dates: start: 20220524, end: 20220527
  4. OXYCONTIN [Suspect]
     Active Substance: OXYCODONE HYDROCHLORIDE
     Route: 048
     Dates: start: 20220527, end: 20220531
  5. OXYCONTIN [Suspect]
     Active Substance: OXYCODONE HYDROCHLORIDE
     Route: 048
     Dates: start: 20220601, end: 20220605
  6. NEURONTIN [Concomitant]
     Active Substance: GABAPENTIN
     Indication: Neuropathy peripheral
     Dosage: STRENGTH: 300 MG; 1 TO 2 MORNING, 1 NOON, 1 EVENING
     Route: 048
     Dates: start: 202203
  7. LOVENOX [Concomitant]
     Active Substance: ENOXAPARIN SODIUM
     Indication: Deep vein thrombosis
     Dosage: 4000 UI ANTI-XA; EVENING
     Route: 065
  8. ACETAMINOPHEN [Concomitant]
     Active Substance: ACETAMINOPHEN
     Indication: Pain in extremity
     Route: 065
     Dates: end: 20220601

REACTIONS (3)
  - Liver disorder [Not Recovered/Not Resolved]
  - Product use in unapproved indication [Unknown]
  - Condition aggravated [Not Recovered/Not Resolved]

NARRATIVE: CASE EVENT DATE: 20210901
